FAERS Safety Report 6032189-5 (Version None)
Quarter: 2009Q1

REPORT INFORMATION
  Report Type: 
  Country: None (occurrence: None)
  Receive Date: 20090108
  Receipt Date: 20081231
  Transmission Date: 20090719
  Serious: Yes (Hospitalization)
  Sender: FDA-Public Use
  Company Number: US-ROXANE LABORATORIES, INC.-2008-RO-00511RO

PATIENT
  Age: 50 Year
  Sex: Female

DRUGS (12)
  1. CYCLOPHOSPHAMIDE [Suspect]
     Indication: SYSTEMIC LUPUS ERYTHEMATOSUS
  2. ACCOLADE [Concomitant]
  3. CIMETIDINE [Concomitant]
  4. ETODOLAC [Concomitant]
  5. TRAMADOL HCL [Concomitant]
  6. HALCION [Concomitant]
  7. FLEXERIL [Concomitant]
  8. ADVAIR DISKUS 250/50 [Concomitant]
  9. ALBUTEROL [Concomitant]
  10. IRON SUPPLEMENTS [Concomitant]
  11. BENADRYL [Concomitant]
  12. ZOFRAN [Concomitant]

REACTIONS (3)
  - IMPLANT SITE REACTION [None]
  - LEIOMYOSARCOMA [None]
  - POSTOPERATIVE WOUND INFECTION [None]
